FAERS Safety Report 6768709-2 (Version None)
Quarter: 2010Q2

REPORT INFORMATION
  Report Type: 
  Country: None (occurrence: None)
  Receive Date: 20100614
  Receipt Date: 20100604
  Transmission Date: 20101027
  Serious: Yes (Hospitalization)
  Sender: FDA-Public Use
  Company Number: FR-AMGEN-KDC416317

PATIENT
  Weight: 82 kg

DRUGS (5)
  1. VECTIBIX [Suspect]
     Indication: BREAST CANCER
     Route: 041
     Dates: start: 20100304
  2. ENDOXAN [Suspect]
     Route: 041
     Dates: start: 20100304
  3. FLUOROURACIL [Suspect]
     Route: 042
     Dates: start: 20100304
  4. EPIRUBICIN [Suspect]
     Dates: start: 20100304
  5. NEUPOGEN [Concomitant]
     Dates: start: 20100413, end: 20100415

REACTIONS (2)
  - APLASIA [None]
  - PYREXIA [None]
